FAERS Safety Report 17263614 (Version 1)
Quarter: 2019Q4

REPORT INFORMATION
  Report Type: Spontaneous
  Country: US (occurrence: US)
  Receive Date: 20191219
  Receipt Date: 20191219
  Transmission Date: 20200122
  Serious: No
  Sender: FDA-Public Use
  Company Number: None

PATIENT
  Age: 73 Year
  Sex: Female

DRUGS (2)
  1. OXANDROLONE. [Concomitant]
     Active Substance: OXANDROLONE
  2. VYNDAQEL [Suspect]
     Active Substance: TAFAMIDIS MEGLUMINE
     Indication: AMYLOIDOSIS
     Dosage: ?          OTHER DOSE:4 CAPSULES;?
     Route: 048
     Dates: start: 20190925

REACTIONS (3)
  - Diabetes mellitus [None]
  - Increased appetite [None]
  - Thrombosis [None]

NARRATIVE: CASE EVENT DATE: 20191218
